FAERS Safety Report 21786274 (Version 3)
Quarter: 2023Q1

REPORT INFORMATION
  Report Type: Report from Study
  Country: CL (occurrence: CL)
  Receive Date: 20221228
  Receipt Date: 20230113
  Transmission Date: 20230418
  Serious: Yes (Hospitalization)
  Sender: FDA-Public Use
  Company Number: CL-BAYER-2022A171936

PATIENT
  Age: 50 Year
  Sex: Female

DRUGS (2)
  1. VENTAVIS [Suspect]
     Active Substance: ILOPROST
     Indication: Pulmonary hypertension
     Dosage: 1 DF, 4 TIMES A DAY
     Route: 055
     Dates: start: 20150805
  2. VENTAVIS [Suspect]
     Active Substance: ILOPROST
     Dosage: 1 DF, 6 TIMES A DAY, EVERY 4 HOURS
     Route: 055

REACTIONS (8)
  - Tachycardia [Recovered/Resolved]
  - Headache [Recovered/Resolved with Sequelae]
  - Nasopharyngitis [Not Recovered/Not Resolved]
  - Productive cough [Not Recovered/Not Resolved]
  - Nausea [Not Recovered/Not Resolved]
  - Skin odour abnormal [Not Recovered/Not Resolved]
  - Hypersensitivity [Not Recovered/Not Resolved]
  - Inappropriate schedule of product administration [Unknown]

NARRATIVE: CASE EVENT DATE: 20150805
